FAERS Safety Report 7511184-0 (Version None)
Quarter: 2011Q2

REPORT INFORMATION
  Report Type: 
  Country: None (occurrence: None)
  Receive Date: 20110531
  Receipt Date: 20110520
  Transmission Date: 20111010
  Serious: Yes (Hospitalization)
  Sender: FDA-Public Use
  Company Number: PHHO2011NL01058

PATIENT
  Sex: Male
  Weight: 69.5 kg

DRUGS (4)
  1. METOPROLOL TARTRATE [Concomitant]
     Indication: ARRHYTHMIA
     Dosage: 25 MG
     Route: 048
     Dates: start: 20100928
  2. MYCOPHENOLIC ACID [Suspect]
     Indication: STEM CELL TRANSPLANT
     Dosage: 2160 MG
     Route: 048
     Dates: start: 20100923
  3. SANDIMMUNE [Suspect]
     Indication: STEM CELL TRANSPLANT
     Dosage: 450 MG
     Route: 048
     Dates: start: 20100918
  4. SANDIMMUNE [Suspect]
     Dosage: 250 MG
     Route: 048

REACTIONS (4)
  - ORTHOSTATIC HYPOTENSION [None]
  - FRACTURE [None]
  - CIRCULATORY COLLAPSE [None]
  - JOINT DISLOCATION [None]
